FAERS Safety Report 5244981-5 (Version None)
Quarter: 2007Q1

REPORT INFORMATION
  Report Type: 
  Country: None (occurrence: None)
  Receive Date: 20070221
  Receipt Date: 20070221
  Transmission Date: 20070707
  Serious: Yes (Other)
  Sender: FDA-Public Use
  Company Number: None

PATIENT
  Age: 11 Year
  Sex: Female
  Weight: 38.5557 kg

DRUGS (2)
  1. ZITHROMAX [Suspect]
     Dosage: 500MG
     Dates: start: 20070103, end: 20070103
  2. TYLENOL W/ CODEINE [Suspect]

REACTIONS (1)
  - ERYTHEMA [None]
